FAERS Safety Report 9280657 (Version 1)
Quarter: 2013Q2

REPORT INFORMATION
  Report Type: Spontaneous
  Country: US (occurrence: US)
  Receive Date: 20130509
  Receipt Date: 20130509
  Transmission Date: 20140414
  Serious: No
  Sender: FDA-Public Use
  Company Number: US-PFIZER INC-2013140335

PATIENT
  Age: 86 Year
  Sex: Female

DRUGS (4)
  1. LEVOXYL [Suspect]
     Indication: HYPOTHYROIDISM
     Dosage: 112 UG, UNK
     Dates: start: 1992
  2. LEVOXYL [Suspect]
     Dosage: 75 UG, UNK
  3. LEVOXYL [Suspect]
     Dosage: 100 UG, UNK
     Dates: start: 2013
  4. ATENOLOL [Concomitant]
     Indication: BLOOD PRESSURE ABNORMAL
     Dosage: 25 MG, 1X/DAY
     Dates: start: 2005

REACTIONS (1)
  - Drug ineffective [Unknown]
